FAERS Safety Report 6396871-2 (Version None)
Quarter: 2009Q4

REPORT INFORMATION
  Report Type: 
  Country: None (occurrence: None)
  Receive Date: 20091012
  Receipt Date: 20090630
  Transmission Date: 20100525
  Serious: No
  Sender: FDA-Public Use
  Company Number: US-ASTRAZENECA-2009UW18308

PATIENT
  Age: 67 Year
  Sex: Female
  Weight: 145.1 kg

DRUGS (2)
  1. SYMBICORT [Suspect]
     Indication: RESPIRATORY DISORDER
     Route: 055
  2. INSULIN [Concomitant]

REACTIONS (3)
  - CHILLS [None]
  - POLLAKIURIA [None]
  - PYREXIA [None]
